FAERS Safety Report 18217976 (Version 1)
Quarter: 2020Q3

REPORT INFORMATION
  Report Type: Spontaneous
  Country: US (occurrence: US)
  Receive Date: 20200901
  Receipt Date: 20200901
  Transmission Date: 20201103
  Serious: Yes (Hospitalization, Other)
  Sender: FDA-Public Use
  Company Number: US-GLENMARK PHARMACEUTICALS-2020GMK049302

PATIENT
  Age: 67 Year
  Sex: Male

DRUGS (5)
  1. EVEROLIMUS. [Suspect]
     Active Substance: EVEROLIMUS
     Indication: IMMUNOSUPPRESSANT DRUG THERAPY
     Dosage: 1 MILLIGRAM, BID
     Route: 048
  2. TACROLIMUS. [Suspect]
     Active Substance: TACROLIMUS
     Indication: IMMUNOSUPPRESSANT DRUG THERAPY
     Dosage: UNK
     Route: 065
  3. CICLOSPORIN [Suspect]
     Active Substance: CYCLOSPORINE
     Indication: IMMUNOSUPPRESSANT DRUG THERAPY
     Dosage: UNK
     Route: 065
  4. PREDNISONE. [Suspect]
     Active Substance: PREDNISONE
     Indication: IMMUNOSUPPRESSANT DRUG THERAPY
     Dosage: 30 MILLIGRAM, BID
     Route: 048
  5. APIXABAN [Concomitant]
     Active Substance: APIXABAN
     Indication: ATRIAL FIBRILLATION
     Dosage: UNK
     Route: 065

REACTIONS (15)
  - Respiratory failure [Unknown]
  - Condition aggravated [Recovering/Resolving]
  - Thrombocytopenia [Recovering/Resolving]
  - Peripheral artery stenosis [Unknown]
  - Ecchymosis [Recovering/Resolving]
  - Acute kidney injury [Unknown]
  - Thrombotic microangiopathy [Recovering/Resolving]
  - Pneumonia pseudomonal [Unknown]
  - Thrombosis [Recovering/Resolving]
  - Skin necrosis [Recovering/Resolving]
  - Cytomegalovirus infection [Unknown]
  - Vascular injury [Recovering/Resolving]
  - Pulmonary embolism [Recovering/Resolving]
  - Normocytic anaemia [Recovering/Resolving]
  - Vasodilatation [Unknown]
